FAERS Safety Report 9953573 (Version 2)
Quarter: 2014Q1

REPORT INFORMATION
  Report Type: Spontaneous
  Country: BR (occurrence: BR)
  Receive Date: 20140304
  Receipt Date: 20140304
  Transmission Date: 20141002
  Serious: Yes (Life-Threatening, Hospitalization)
  Sender: FDA-Public Use
  Company Number: BR-BRISTOL-MYERS SQUIBB COMPANY-19047372

PATIENT
  Sex: Female

DRUGS (1)
  1. ORENCIA [Suspect]
     Indication: RHEUMATOID ARTHRITIS
     Dosage: RECEIVED ON JUL-2013?RECEIVED ON 09-SEP-2013

REACTIONS (15)
  - Pneumonia [Recovering/Resolving]
  - Dyspnoea [Recovering/Resolving]
  - Blood glucose decreased [Unknown]
  - Malaise [Unknown]
  - Blood pressure decreased [Unknown]
  - Wrong technique in drug usage process [Unknown]
  - Headache [Recovered/Resolved]
  - Blood glucose increased [Recovered/Resolved]
  - Pain in extremity [Not Recovered/Not Resolved]
  - Skin hypertrophy [Unknown]
  - Blood pressure increased [Recovered/Resolved]
  - Mass [Recovered/Resolved]
  - Pulmonary mass [Unknown]
  - Vascular calcification [Not Recovered/Not Resolved]
  - Immune system disorder [Recovered/Resolved]
